FAERS Safety Report 9637331 (Version 2)
Quarter: 2013Q4

REPORT INFORMATION
  Report Type: Spontaneous
  Country: DE (occurrence: DE)
  Receive Date: 20131022
  Receipt Date: 20131113
  Transmission Date: 20140711
  Serious: Yes (Hospitalization)
  Sender: FDA-Public Use
  Company Number: DE-JNJFOC-20131008656

PATIENT
  Age: 40 Year
  Sex: Male

DRUGS (6)
  1. REMICADE [Suspect]
     Indication: CROHN^S DISEASE
     Route: 042
     Dates: start: 201211
  2. REMICADE [Suspect]
     Indication: SPONDYLITIS
     Route: 042
     Dates: start: 201211
  3. PREDNISONE [Suspect]
     Indication: CROHN^S DISEASE
     Route: 065
     Dates: start: 201211
  4. PREDNISONE [Suspect]
     Indication: SPONDYLITIS
     Route: 065
     Dates: start: 201211
  5. METHOTREXATE [Suspect]
     Indication: CROHN^S DISEASE
     Route: 065
     Dates: start: 201211
  6. METHOTREXATE [Suspect]
     Indication: SPONDYLITIS
     Route: 065
     Dates: start: 201211

REACTIONS (2)
  - Disseminated tuberculosis [Unknown]
  - Tuberculosis gastrointestinal [Unknown]
